FAERS Safety Report 4763644-3 (Version None)
Quarter: 2005Q3

REPORT INFORMATION
  Report Type: 
  Country: None (occurrence: None)
  Receive Date: 20050908
  Receipt Date: 20050902
  Transmission Date: 20060218
  Serious: Yes (Hospitalization)
  Sender: FDA-Public Use
  Company Number: 2005CG01474

PATIENT
  Age: 20638 Day

DRUGS (2)
  1. IRESSA [Suspect]
     Indication: LUNG NEOPLASM MALIGNANT
     Route: 048
     Dates: start: 20050701
  2. SECTRAL [Concomitant]

REACTIONS (2)
  - SKIN INFECTION [None]
  - SKIN LESION [None]
